FAERS Safety Report 6925047 (Version 1)
Quarter: 2020Q3

REPORT INFORMATION
  Report Type: Report from Study
  Country: IN (occurrence: IN)
  Receive Date: 20090302
  Receipt Date: 20090302
  Transmission Date: 20201105
  Serious: Yes (Hospitalization)
  Sender: FDA-Public Use
  Company Number: IN-WYE-H08174609

PATIENT
  Age: 65 Year
  Sex: Male
  Weight: 52 kg

DRUGS (7)
  1. INDAPAMIDE. [Suspect]
     Active Substance: INDAPAMIDE
     Indication: HYPERTENSION
     Dosage: ONE ^SR^ TAB ONCE A DAY
     Route: 048
     Dates: start: 20081110, end: 20090211
  2. POVIDONE?IODINE. [Concomitant]
     Active Substance: POVIDONE-IODINE
     Indication: DENTAL DISORDER PROPHYLAXIS
     Dosage: GARGLES AT UNKNOWN FREQUENCY
     Dates: start: 20081112
  3. AVASTIN [Suspect]
     Active Substance: BEVACIZUMAB
     Indication: METASTATIC RENAL CELL CARCINOMA
     Route: 042
     Dates: start: 20081112, end: 20090123
  4. MAGNESIUM TRISILICATE [Concomitant]
     Active Substance: MAGNESIUM TRISILICATE
     Indication: PROPHYLAXIS
     Route: 048
     Dates: start: 20090115
  5. AVASTIN [Suspect]
     Active Substance: BEVACIZUMAB
     Route: 042
     Dates: start: 20090216
  6. INSULIN HUMAN NOS [Concomitant]
     Active Substance: INSULIN HUMAN
     Indication: DIABETES MELLITUS
     Dosage: DOSED ACCORDING TO SLIDING SCALE FOUR TIMES A DAY
     Route: 058
     Dates: start: 20090211
  7. INTERFERON ALFA NOS [Suspect]
     Active Substance: INTERFERON ALFA-2A OR INTERFERON ALFA-2B
     Indication: METASTATIC RENAL CELL CARCINOMA
     Route: 058
     Dates: start: 20081112, end: 20090210

REACTIONS (2)
  - Hyponatraemia [Recovered/Resolved]
  - Back pain [Recovered/Resolved]

NARRATIVE: CASE EVENT DATE: 20090201
